FAERS Safety Report 8814849 (Version 2)
Quarter: 2012Q4

REPORT INFORMATION
  Report Type: 
  Country: US (occurrence: US)
  Receive Date: 20120928
  Receipt Date: 20121008
  Transmission Date: 20130627
  Serious: Yes (Hospitalization, Other)
  Sender: FDA-Public Use
  Company Number: US-PFIZER INC-2011107994

PATIENT
  Age: 55 Year
  Sex: Female
  Weight: 72 kg

DRUGS (5)
  1. IBUPROFEN [Suspect]
     Dosage: 600 mg, UNK
     Route: 065
     Dates: end: 201103
  2. REBIF [Concomitant]
     Indication: MULTIPLE SCLEROSIS
     Dosage: 44 ug, 3x/week
     Route: 058
     Dates: start: 20101220
  3. ALL OTHER THERAPEUTIC PRODUCTS [Concomitant]
     Indication: CARDIAC FAILURE CONGESTIVE
  4. ALL OTHER THERAPEUTIC PRODUCTS [Concomitant]
     Indication: MYOCARDIAL INFARCTION
  5. ANTIHYPERTENSIVES [Concomitant]
     Indication: HYPERTENSION

REACTIONS (4)
  - Colitis ischaemic [Recovered/Resolved]
  - Petechiae [Unknown]
  - Pain [Unknown]
  - Fatigue [Unknown]
